FAERS Safety Report 4916143-X (Version None)
Quarter: 2006Q1

REPORT INFORMATION
  Report Type: 
  Country: None (occurrence: None)
  Receive Date: 20060217
  Receipt Date: 20050930
  Transmission Date: 20060701
  Serious: Yes (Hospitalization)
  Sender: FDA-Public Use
  Company Number: US-MERCK-0510USA01944

PATIENT
  Age: 51 Year
  Sex: Female
  Weight: 90 kg

DRUGS (13)
  1. VIOXX [Suspect]
     Indication: BACK PAIN
     Route: 048
     Dates: start: 19990827, end: 20041001
  2. ATENOLOL [Concomitant]
     Route: 065
  3. BENZONATATE [Concomitant]
     Route: 065
  4. CARISOPRODOL [Concomitant]
     Route: 065
  5. DARVOCET-N 50 [Concomitant]
     Route: 065
  6. DELTASONE [Concomitant]
     Route: 065
  7. DEMADEX [Concomitant]
     Route: 065
  8. ETODOLAC [Concomitant]
     Route: 065
  9. LIBRAX CAPSULES [Concomitant]
     Route: 065
  10. PLAVIX [Concomitant]
     Route: 065
  11. PREDNISONE [Concomitant]
     Route: 065
  12. [THERAPY UNSPECIFIED] [Concomitant]
     Route: 065
  13. TALACEN [Concomitant]
     Route: 065

REACTIONS (3)
  - CARDIAC DISORDER [None]
  - CHOLELITHIASIS [None]
  - MYOCARDIAL INFARCTION [None]
